FAERS Safety Report 4740541-0 (Version None)
Quarter: 2005Q3

REPORT INFORMATION
  Report Type: 
  Country: None (occurrence: None)
  Receive Date: 20050810
  Receipt Date: 20050805
  Transmission Date: 20060218
  Serious: Yes (Life-Threatening)
  Sender: FDA-Public Use
  Company Number: PHHO2005JP12393

PATIENT
  Age: 86 Year
  Sex: Female
  Weight: 47 kg

DRUGS (7)
  1. DEPAS [Suspect]
     Indication: PSYCHOSOMATIC DISEASE
     Dosage: 1.5MG DAILY
     Route: 048
     Dates: start: 19991202, end: 20040407
  2. ALANTA SF [Suspect]
     Indication: GASTRITIS
     Dosage: 300MG DAILY
     Route: 048
     Dates: start: 20020725, end: 20040407
  3. ROHYPNOL [Suspect]
     Indication: INSOMNIA
     Dosage: 2MG DAILY
     Route: 048
     Dates: start: 19990415, end: 20040407
  4. FRENADOL [Concomitant]
     Indication: ANGINA PECTORIS
     Dates: start: 19990409, end: 20040407
  5. NAPAGELN [Concomitant]
     Dates: start: 20000222
  6. NORVASC [Concomitant]
     Indication: HYPERTENSION
     Dosage: 2.5MG DAILY
     Route: 048
     Dates: start: 20040314, end: 20040407
  7. DIOVAN [Suspect]
     Indication: HYPERTENSION
     Dosage: 40MG DAILY
     Route: 048
     Dates: start: 20030217, end: 20040407

REACTIONS (10)
  - ABNORMAL BEHAVIOUR [None]
  - ANOREXIA [None]
  - BODY TEMPERATURE DECREASED [None]
  - DEPRESSED LEVEL OF CONSCIOUSNESS [None]
  - DYSPHAGIA [None]
  - FACE OEDEMA [None]
  - HALLUCINATION, VISUAL [None]
  - MYXOEDEMA COMA [None]
  - OEDEMA PERIPHERAL [None]
  - SINUS BRADYCARDIA [None]
